FAERS Safety Report 9649633 (Version 1)
Quarter: 2013Q4

REPORT INFORMATION
  Report Type: Spontaneous
  Country: GB (occurrence: None)
  Receive Date: 20131025
  Receipt Date: 20131025
  Transmission Date: 20140711
  Serious: Yes (Other)
  Sender: FDA-Public Use
  Company Number: AUR-APL-2013-08707

PATIENT
  Age: 69 Year
  Sex: Female

DRUGS (13)
  1. ENALAPRIL [Suspect]
     Indication: PRODUCT USED FOR UNKNOWN INDICATION
     Dosage: 20MG (20MG 1 IN 1 D)
  2. METFORMIN (METFORMIN) [Suspect]
     Indication: DEPRESSION
     Dosage: 2GM (1GM, 2 IN 1 D) ORAL
     Route: 048
  3. ROACTEMRA [Suspect]
     Indication: RHEUMATOID ARTHRITIS
     Dosage: 20MG PER ML SOLUTION EVERY 4 WEEKS, INTRAVENOUS
     Route: 042
     Dates: start: 20120531, end: 20130816
  4. BUMETANIDE [Suspect]
     Indication: PRODUCT USED FOR UNKNOWN INDICATION
     Dosage: 2 MG (1 MG,2 IN 1 D) UNKNOWN
  5. ALENDRONIC ACID (ALENDRONIC ACID) [Concomitant]
  6. ALLOPURINOL [Concomitant]
  7. ATORVASTATIN (ATORVASTATIN) [Concomitant]
  8. DIGOXIN (DIGOXIN) [Concomitant]
  9. FLUOXETINE (FLUOXETINE) [Concomitant]
  10. LANSOPRAZOLE (LANSOPRAZOLE) [Concomitant]
  11. METHOTREXATE (METHOTREXATE) [Concomitant]
  12. PREDNISOLON (PREDNISOLONE) [Concomitant]
  13. REPAGLINIDE (REPAGLINIDE) [Concomitant]

REACTIONS (3)
  - Renal impairment [None]
  - Haemoglobin decreased [None]
  - Urinary tract infection [None]
